FAERS Safety Report 9287675 (Version 1)
Quarter: 2013Q2

REPORT INFORMATION
  Report Type: Spontaneous
  Country: US (occurrence: US)
  Receive Date: 20130514
  Receipt Date: 20130514
  Transmission Date: 20140414
  Serious: Yes (Other)
  Sender: FDA-Public Use
  Company Number: PHEH2013US010403

PATIENT
  Sex: Female

DRUGS (2)
  1. RITALIN [Suspect]
     Dosage: 20 MG, UNK
  2. PERCODAN [Suspect]
     Dosage: UNK UKN, UNK

REACTIONS (4)
  - Coma [Unknown]
  - Fall [Unknown]
  - Musculoskeletal discomfort [Unknown]
  - Drug ineffective [Unknown]
